FAERS Safety Report 6579635-6 (Version None)
Quarter: 2010Q1

REPORT INFORMATION
  Report Type: 
  Country: None (occurrence: None)
  Receive Date: 20100212
  Receipt Date: 20100208
  Transmission Date: 20100710
  Serious: Yes (Life-Threatening)
  Sender: FDA-Public Use
  Company Number: FR-ASTRAZENECA-2010SE05541

PATIENT
  Age: 17648 Day
  Sex: Female

DRUGS (4)
  1. DIPRIVAN [Suspect]
     Route: 042
     Dates: start: 20100103, end: 20100103
  2. CELOCURINE [Suspect]
     Route: 042
     Dates: start: 20100103, end: 20100103
  3. SUFENTANIL [Suspect]
     Route: 042
     Dates: start: 20100103, end: 20100103
  4. HYPNOVEL [Suspect]
     Route: 042
     Dates: start: 20100103, end: 20100103

REACTIONS (6)
  - ANAPHYLACTIC SHOCK [None]
  - CIRCULATORY COLLAPSE [None]
  - FACE OEDEMA [None]
  - GENERALISED ERYTHEMA [None]
  - OXYGEN SATURATION DECREASED [None]
  - TACHYCARDIA [None]
